FAERS Safety Report 6183555-9 (Version None)
Quarter: 2009Q2

REPORT INFORMATION
  Report Type: 
  Country: None (occurrence: None)
  Receive Date: 20090508
  Receipt Date: 20090505
  Transmission Date: 20091009
  Serious: Yes (Hospitalization, Other)
  Sender: FDA-Public Use
  Company Number: US-BRISTOL-MYERS SQUIBB COMPANY-14612014

PATIENT
  Age: 58 Year
  Sex: Male
  Weight: 86 kg

DRUGS (4)
  1. ERBITUX [Suspect]
     Indication: HEAD AND NECK CANCER
     Dosage: STARTED ON 23MAR09 STOPPED ON 20APR09
     Route: 041
     Dates: start: 20090331, end: 20090331
  2. TAXOL [Suspect]
     Indication: HEAD AND NECK CANCER
     Dates: start: 20090330
  3. CARBOPLATIN [Suspect]
     Indication: HEAD AND NECK CANCER
     Dosage: RESTARTED ON 20APR09
     Dates: start: 20090330
  4. RADIATION THERAPY [Suspect]
     Indication: HEAD AND NECK CANCER
     Dosage: RESTARTED ON 20APR09
     Dates: start: 20090330

REACTIONS (14)
  - DEHYDRATION [None]
  - DIARRHOEA [None]
  - DIZZINESS POSTURAL [None]
  - EJECTION FRACTION DECREASED [None]
  - HYPOPHAGIA [None]
  - HYPOTENSION [None]
  - HYPOVOLAEMIA [None]
  - LEUKOPENIA [None]
  - MUCOSAL INFLAMMATION [None]
  - NEUTROPENIA [None]
  - PYREXIA [None]
  - RENAL FAILURE ACUTE [None]
  - TACHYCARDIA [None]
  - THROMBOCYTOPENIA [None]
